FAERS Safety Report 15725689 (Version 2)
Quarter: 2019Q4

REPORT INFORMATION
  Report Type: Spontaneous
  Country: US (occurrence: US)
  Receive Date: 20181215
  Receipt Date: 20191216
  Transmission Date: 20200122
  Serious: Yes (Death, Hospitalization)
  Sender: FDA-Public Use
  Company Number: US-ACTELION-A-NJ2018-183480

PATIENT
  Age: 71 Year
  Sex: Male

DRUGS (1)
  1. OPSUMIT [Suspect]
     Active Substance: MACITENTAN
     Indication: PULMONARY HYPERTENSION
     Dosage: 10 MG, QD
     Route: 048
     Dates: start: 2015

REACTIONS (8)
  - Death [Fatal]
  - Dialysis [Unknown]
  - Peripheral swelling [Unknown]
  - Pain in extremity [Unknown]
  - Condition aggravated [Unknown]
  - Cellulitis [Unknown]
  - Feeling hot [Unknown]
  - Erythema [Unknown]

NARRATIVE: CASE EVENT DATE: 20181126
